FAERS Safety Report 6636628-8 (Version None)
Quarter: 2010Q1

REPORT INFORMATION
  Report Type: 
  Country: None (occurrence: None)
  Receive Date: 20100316
  Receipt Date: 20100316
  Transmission Date: 20100710
  Serious: Yes (Death)
  Sender: FDA-Public Use
  Company Number: IT-WYE-G05756910

PATIENT
  Sex: Male
  Weight: 75 kg

DRUGS (2)
  1. TORISEL [Suspect]
     Indication: ACUTE MYELOID LEUKAEMIA
     Dosage: 2 DOSES 25MG
     Route: 042
     Dates: start: 20100226, end: 20100305
  2. CLOFARABINE [Suspect]
     Indication: ACUTE MYELOID LEUKAEMIA
     Dosage: UNIT DOSE 38MG / CUMULATIVE DOSE 190MG
     Route: 042
     Dates: start: 20100226, end: 20100302

REACTIONS (2)
  - PNEUMONIA [None]
  - RESPIRATORY DISTRESS [None]
